FAERS Safety Report 17769501 (Version 2)
Quarter: 2020Q2

REPORT INFORMATION
  Report Type: Spontaneous
  Country: US (occurrence: US)
  Receive Date: 20200512
  Receipt Date: 20200630
  Transmission Date: 20200714
  Serious: No
  Sender: FDA-Public Use
  Company Number: US-BAYER-2020-074600

PATIENT
  Sex: Male

DRUGS (3)
  1. CLARITIN LIQUI-GELS [Suspect]
     Active Substance: LORATADINE
     Dosage: UNK
     Route: 048
  2. ALLEGRA [Concomitant]
     Active Substance: FEXOFENADINE HYDROCHLORIDE
  3. DIPHENHYDRAMINE HYDROCHLORIDE. [Concomitant]
     Active Substance: DIPHENHYDRAMINE HYDROCHLORIDE

REACTIONS (2)
  - Drug ineffective [Unknown]
  - Product packaging quantity issue [Unknown]
